FAERS Safety Report 10182473 (Version 3)
Quarter: 2014Q2

REPORT INFORMATION
  Report Type: Spontaneous
  Country: US (occurrence: US)
  Receive Date: 20140520
  Receipt Date: 20140625
  Transmission Date: 20141212
  Serious: Yes (Other)
  Sender: FDA-Public Use
  Company Number: US-JNJFOC-20140504711

PATIENT
  Sex: Male
  Weight: 72.58 kg

DRUGS (7)
  1. DURAGESIC [Suspect]
     Indication: PAIN
     Route: 062
  2. DURAGESIC [Suspect]
     Indication: PAIN
     Route: 062
     Dates: start: 2003
  3. DURAGESIC [Suspect]
     Indication: PAIN
     Route: 062
  4. DURAGESIC [Suspect]
     Indication: PAIN
     Route: 062
  5. HYDROCODONE [Concomitant]
     Indication: BREAKTHROUGH PAIN
     Dosage: 10 TO 500 MG AS NEEDED
     Route: 048
     Dates: start: 2003
  6. NUCYNTA [Concomitant]
     Indication: BREAKTHROUGH PAIN
     Route: 048
  7. ACETAMINOPHEN [Concomitant]
     Route: 065
     Dates: start: 2003

REACTIONS (8)
  - Diabetes mellitus [Not Recovered/Not Resolved]
  - Breakthrough pain [Not Recovered/Not Resolved]
  - Inappropriate schedule of drug administration [Unknown]
  - Application site perspiration [Unknown]
  - Therapeutic response decreased [Unknown]
  - Product quality issue [Unknown]
  - Product quality issue [Unknown]
  - Wrong technique in drug usage process [Unknown]
